FAERS Safety Report 5391441-7 (Version None)
Quarter: 2007Q3

REPORT INFORMATION
  Report Type: 
  Country: None (occurrence: None)
  Receive Date: 20070719
  Receipt Date: 20070710
  Transmission Date: 20080115
  Serious: Yes (Life-Threatening, Hospitalization)
  Sender: FDA-Public Use
  Company Number: US-ROCHE-484891

PATIENT
  Age: 79 Year
  Sex: Female
  Weight: 51.3 kg

DRUGS (4)
  1. BONIVA [Suspect]
     Indication: OSTEOPOROSIS
     Route: 042
     Dates: start: 20070123, end: 20070123
  2. HYDROCHLOROTHIAZIDE [Concomitant]
  3. DILTIAZEM [Concomitant]
  4. UNSPECIFIED MEDICATIONS [Concomitant]

REACTIONS (1)
  - NEPHRITIS INTERSTITIAL [None]
